FAERS Safety Report 9311423 (Version 2)
Quarter: 2013Q2

REPORT INFORMATION
  Report Type: Spontaneous
  Country: US (occurrence: None)
  Receive Date: 20130307
  Receipt Date: 20130412
  Transmission Date: 20140414
  Serious: Yes (Hospitalization)
  Sender: FDA-Public Use
  Company Number: AXC-2013-000053

PATIENT
  Age: 58 Year
  Sex: Male
  Weight: 99.8 kg

DRUGS (9)
  1. CANASA [Suspect]
     Indication: COLITIS ULCERATIVE
     Route: 054
     Dates: end: 201301
  2. 6-MP [Suspect]
     Dates: start: 201211
  3. NEXIUM [Concomitant]
  4. METOPROLOL (METOPROLOL) [Concomitant]
  5. AMLODIPINE (AMLODIPINE) [Concomitant]
  6. LEVSIN [Concomitant]
  7. PREDNISONE (PREDNISONE) [Concomitant]
  8. NEURONTIN (GABAPENTIN) [Concomitant]
  9. LIALDA [Concomitant]

REACTIONS (11)
  - Perirectal abscess [None]
  - Post procedural discomfort [None]
  - Anal fissure [None]
  - Anal fistula [None]
  - Weight decreased [None]
  - Feeling abnormal [None]
  - Diarrhoea [None]
  - Decreased appetite [None]
  - Gastroenteritis viral [None]
  - Colitis ulcerative [None]
  - Condition aggravated [None]
